FAERS Safety Report 24829922 (Version 1)
Quarter: 2025Q1

REPORT INFORMATION
  Report Type: Spontaneous
  Country: CA (occurrence: CA)
  Receive Date: 20250110
  Receipt Date: 20250110
  Transmission Date: 20250409
  Serious: Yes (Hospitalization)
  Sender: CSL BEHRING
  Company Number: CA-BEH-2025191464

PATIENT

DRUGS (1)
  1. HUMAN IMMUNOGLOBULIN G [Suspect]
     Active Substance: HUMAN IMMUNOGLOBULIN G
     Indication: Immune thrombocytopenia
     Route: 042

REACTIONS (3)
  - Troponin increased [Unknown]
  - Chills [Unknown]
  - Pyrexia [Unknown]
